FAERS Safety Report 11927212 (Version 10)
Quarter: 2017Q4

REPORT INFORMATION
  Report Type: Report from Study
  Country: US (occurrence: US)
  Receive Date: 20160119
  Receipt Date: 20171207
  Transmission Date: 20180320
  Serious: Yes (Other)
  Sender: FDA-Public Use
  Company Number: US-SA-2015SA190677

PATIENT
  Age: 54 Year
  Sex: Male

DRUGS (5)
  1. LEMTRADA [Suspect]
     Active Substance: ALEMTUZUMAB
     Indication: MULTIPLE SCLEROSIS
     Route: 041
     Dates: start: 20151101, end: 20151101
  2. LEMTRADA [Suspect]
     Active Substance: ALEMTUZUMAB
     Indication: MULTIPLE SCLEROSIS
     Route: 041
     Dates: start: 20151103, end: 20151103
  3. LEMTRADA [Suspect]
     Active Substance: ALEMTUZUMAB
     Indication: MULTIPLE SCLEROSIS
     Route: 041
     Dates: start: 20151029, end: 20151031
  4. LEMTRADA [Suspect]
     Active Substance: ALEMTUZUMAB
     Indication: MULTIPLE SCLEROSIS
     Route: 041
     Dates: start: 20161118, end: 20161120
  5. PREDNISONE. [Suspect]
     Active Substance: PREDNISONE
     Indication: MULTIPLE SCLEROSIS RELAPSE
     Route: 048
     Dates: start: 201605

REACTIONS (19)
  - Nasopharyngitis [Not Recovered/Not Resolved]
  - Multiple sclerosis relapse [Not Recovered/Not Resolved]
  - Muscle spasticity [Recovering/Resolving]
  - Diplopia [Not Recovered/Not Resolved]
  - Fatigue [Not Recovered/Not Resolved]
  - Unevaluable event [Unknown]
  - Cough [Not Recovered/Not Resolved]
  - Paraesthesia [Not Recovered/Not Resolved]
  - Hypoaesthesia [Not Recovered/Not Resolved]
  - Nuclear magnetic resonance imaging abnormal [Not Recovered/Not Resolved]
  - Optic neuritis [Unknown]
  - Fall [Unknown]
  - Pain [Unknown]
  - Headache [Unknown]
  - Nephrolithiasis [Recovered/Resolved]
  - Neuropathy peripheral [Not Recovered/Not Resolved]
  - Asthenia [Not Recovered/Not Resolved]
  - CD4 lymphocytes decreased [Not Recovered/Not Resolved]
  - Blood pressure increased [Recovered/Resolved]

NARRATIVE: CASE EVENT DATE: 2015
